FAERS Safety Report 9807833 (Version 1)
Quarter: 2014Q1

REPORT INFORMATION
  Report Type: Spontaneous
  Country: US (occurrence: US)
  Receive Date: 20140110
  Receipt Date: 20140110
  Transmission Date: 20141002
  Serious: No
  Sender: FDA-Public Use
  Company Number: US-TEVA-455140USA

PATIENT
  Age: 46 Year
  Sex: Female
  Weight: 67.65 kg

DRUGS (2)
  1. PARAGARD 380A [Suspect]
     Indication: JOINT CONTRACTURE
     Dates: start: 2002, end: 20131231
  2. VITAMINS [Concomitant]
     Indication: NUTRITIONAL SUPPLEMENTATION

REACTIONS (3)
  - Procedural pain [Recovered/Resolved]
  - Vaginal haemorrhage [Recovered/Resolved]
  - Expired device used [Unknown]
